FAERS Safety Report 7033454 (Version 6)
Quarter: 2014Q2

REPORT INFORMATION
  Report Type: Spontaneous
  Country: DE (occurrence: DE)
  Receive Date: 20090625
  Receipt Date: 20140624
  Transmission Date: 20141212
  Serious: Yes (Other)
  Sender: FDA-Public Use
  Company Number: DE-AMGEN-UK352157

PATIENT
  Age: 81 Year
  Sex: Female
  Weight: 80 kg

DRUGS (3)
  1. NPLATE [Suspect]
     Indication: PRODUCT USED FOR UNKNOWN INDICATION
     Dosage: 5 MUG/KG, QWK
     Route: 058
     Dates: start: 20090605
  2. IMMUNOGLOBULIN HUMAN NORMAL [Suspect]
     Dosage: 10 G, ONE TIME DOSE
     Route: 042
     Dates: start: 20090612
  3. POTASSIUM CHLORIDE [Concomitant]
     Dosage: UNK UNK, UNK
     Route: 048

REACTIONS (5)
  - Haemorrhage [Recovered/Resolved]
  - Embolism [Recovered/Resolved with Sequelae]
  - Ischaemia [Unknown]
  - No therapeutic response [Recovered/Resolved with Sequelae]
  - Hypoperfusion [Unknown]
